FAERS Safety Report 9698873 (Version 1)
Quarter: 2013Q4

REPORT INFORMATION
  Report Type: Spontaneous
  Country: JP (occurrence: JP)
  Receive Date: 20131120
  Receipt Date: 20131120
  Transmission Date: 20140711
  Serious: Yes (Hospitalization)
  Sender: FDA-Public Use
  Company Number: JP-009507513-1311JPN007826

PATIENT
  Sex: 0

DRUGS (1)
  1. NU-LOTAN TABLETS 25MG [Suspect]
     Dosage: DIVIDED DOSE FREQUENCY UNKNOWN
     Route: 048

REACTIONS (1)
  - Hyponatraemia [Unknown]
